FAERS Safety Report 10080719 (Version 2)
Quarter: 2014Q2

REPORT INFORMATION
  Report Type: Spontaneous
  Country: MA (occurrence: MA)
  Receive Date: 20140416
  Receipt Date: 20140506
  Transmission Date: 20141212
  Serious: Yes (Other)
  Sender: FDA-Public Use
  Company Number: MA-SA-2014SA048463

PATIENT
  Age: 55 Year
  Sex: Male

DRUGS (1)
  1. FABRAZYME [Suspect]
     Indication: FABRY^S DISEASE
     Route: 042
     Dates: start: 20140228

REACTIONS (5)
  - Respiratory distress [Recovered/Resolved]
  - Cough [Unknown]
  - Rash [Unknown]
  - Vomiting [Unknown]
  - Generalised oedema [Recovered/Resolved]
